FAERS Safety Report 8162383-9 (Version None)
Quarter: 2012Q1

REPORT INFORMATION
  Report Type: 
  Country: None (occurrence: None)
  Receive Date: 20120224
  Receipt Date: 20120213
  Transmission Date: 20120608
  Serious: Yes (Hospitalization)
  Sender: FDA-Public Use
  Company Number: AU-ELI_LILLY_AND_COMPANY-AU201202003165

PATIENT
  Sex: Female

DRUGS (1)
  1. FORTEO [Suspect]
     Indication: OSTEOPOROSIS
     Dosage: 20 UG, QD
     Dates: start: 20110817

REACTIONS (5)
  - HERNIA HIATUS REPAIR [None]
  - WEIGHT DECREASED [None]
  - ERUCTATION [None]
  - FEEDING DISORDER [None]
  - PAIN [None]
